FAERS Safety Report 9503028 (Version 1)
Quarter: 2013Q1

REPORT INFORMATION
  Report Type: Spontaneous
  Country: US (occurrence: None)
  Receive Date: 20130226
  Receipt Date: 20130226
  Transmission Date: 20140127
  Serious: Yes (Hospitalization)
  Sender: FDA-Public Use
  Company Number: PHEH2012US003516

PATIENT
  Age: 14 Year
  Sex: Female

DRUGS (1)
  1. TOBI (TOBRAMCYIN) SOL. AEROSOL METERED DOSE INH. [Suspect]
     Indication: CYSTIC FIBROSIS

REACTIONS (1)
  - Cough [None]
